FAERS Safety Report 9906772 (Version 1)
Quarter: 2014Q1

REPORT INFORMATION
  Report Type: Spontaneous
  Country: US (occurrence: US)
  Receive Date: 20140218
  Receipt Date: 20140218
  Transmission Date: 20141002
  Serious: Yes (Other)
  Sender: FDA-Public Use
  Company Number: US-ELI_LILLY_AND_COMPANY-US201402004202

PATIENT
  Sex: Female

DRUGS (2)
  1. EVISTA [Suspect]
     Indication: OSTEOPOROSIS
     Dosage: UNK UNK, UNKNOWN
     Route: 065
  2. EVISTA [Suspect]
     Dosage: 60 MG, QD
     Dates: start: 20140203, end: 20140208

REACTIONS (4)
  - Breast cancer [Unknown]
  - Tinnitus [Unknown]
  - Balance disorder [Unknown]
  - Haemorrhage [Unknown]
